FAERS Safety Report 13336544 (Version 5)
Quarter: 2017Q4

REPORT INFORMATION
  Report Type: Spontaneous
  Country: US (occurrence: US)
  Receive Date: 20170314
  Receipt Date: 20171212
  Transmission Date: 20180320
  Serious: Yes (Other)
  Sender: FDA-Public Use
  Company Number: US-JAZZ-2017-US-001865

PATIENT
  Sex: Male

DRUGS (16)
  1. XYREM [Suspect]
     Active Substance: SODIUM OXYBATE
     Indication: CATAPLEXY
     Dosage: DOSE ADJUSTMENT
     Route: 048
     Dates: start: 2016, end: 2016
  2. XYREM [Suspect]
     Active Substance: SODIUM OXYBATE
     Dosage: 3 G, QD (SECOND DOSE)
     Route: 048
     Dates: start: 201610
  3. XYREM [Suspect]
     Active Substance: SODIUM OXYBATE
     Dosage: 3.75 G, BID
     Route: 048
  4. FOCALIN [Concomitant]
     Active Substance: DEXMETHYLPHENIDATE HYDROCHLORIDE
  5. MARIJUANA [Concomitant]
     Active Substance: CANNABIS SATIVA SUBSP. INDICA TOP
  6. ZYRTEC [Concomitant]
     Active Substance: CETIRIZINE HYDROCHLORIDE
  7. XYREM [Suspect]
     Active Substance: SODIUM OXYBATE
     Dosage: 4.5 G, BID
     Route: 048
  8. BUSPAR [Suspect]
     Active Substance: BUSPIRONE HYDROCHLORIDE
     Indication: PRODUCT USED FOR UNKNOWN INDICATION
     Dosage: UNK
     Dates: end: 20171129
  9. XYREM [Suspect]
     Active Substance: SODIUM OXYBATE
     Indication: NARCOLEPSY
     Dosage: 2.25G, BID
     Route: 048
     Dates: start: 201606, end: 2016
  10. HETLIOZ [Concomitant]
     Active Substance: TASIMELTEON
  11. MELATONIN [Concomitant]
     Active Substance: MELATONIN
  12. XYREM [Suspect]
     Active Substance: SODIUM OXYBATE
     Dosage: 3.5 G, BID
     Route: 048
  13. EFFEXOR [Concomitant]
     Active Substance: VENLAFAXINE HYDROCHLORIDE
  14. IBUPROFEN. [Concomitant]
     Active Substance: IBUPROFEN
  15. XYREM [Suspect]
     Active Substance: SODIUM OXYBATE
     Dosage: 3.5G, QD (FIRST DOSE)
     Route: 048
     Dates: start: 201610
  16. CYMBALTA [Concomitant]
     Active Substance: DULOXETINE HYDROCHLORIDE

REACTIONS (6)
  - Snoring [Not Recovered/Not Resolved]
  - Sleep apnoea syndrome [Not Recovered/Not Resolved]
  - Feeling abnormal [Recovering/Resolving]
  - Treatment noncompliance [Unknown]
  - Somnolence [Unknown]
  - Sleep apnoea syndrome [Unknown]

NARRATIVE: CASE EVENT DATE: 2016
